FAERS Safety Report 5303063-4 (Version None)
Quarter: 2007Q1

REPORT INFORMATION
  Report Type: 
  Country: None (occurrence: None)
  Receive Date: 20070201
  Receipt Date: 20061128
  Transmission Date: 20070707
  Serious: No
  Sender: FDA-Public Use
  Company Number: 2006PV026088

PATIENT
  Age: 61 Year
  Sex: Male
  Weight: 127.0072 kg

DRUGS (4)
  1. BYETTA [Suspect]
     Indication: DIABETES MELLITUS NON-INSULIN-DEPENDENT
     Dosage: 5 MCG; BID; SC
     Route: 058
     Dates: start: 20061115, end: 20061119
  2. METFORMIN HCL [Concomitant]
  3. AVANDIA [Concomitant]
  4. GLIPIZIDE [Concomitant]

REACTIONS (5)
  - BLOOD GLUCOSE DECREASED [None]
  - CHILLS [None]
  - HEADACHE [None]
  - NAUSEA [None]
  - TREMOR [None]
